FAERS Safety Report 6348024-1 (Version None)
Quarter: 2009Q3

REPORT INFORMATION
  Report Type: 
  Country: None (occurrence: None)
  Receive Date: 20090908
  Receipt Date: 20090826
  Transmission Date: 20100115
  Serious: Yes (Other)
  Sender: FDA-Public Use
  Company Number: 2009-03250

PATIENT
  Age: 83 Year
  Sex: Male
  Weight: 69.4 kg

DRUGS (3)
  1. VELCADE [Suspect]
     Indication: MULTIPLE MYELOMA
     Dosage: 1.5 MG,
     Dates: start: 20090316, end: 20090430
  2. MELPHALAN(MELPHALAN) [Suspect]
     Indication: MULTIPLE MYELOMA
  3. DECADRON [Suspect]
     Indication: MULTIPLE MYELOMA

REACTIONS (5)
  - DIPLOPIA [None]
  - DIZZINESS [None]
  - MEMORY IMPAIRMENT [None]
  - NEUROPATHY PERIPHERAL [None]
  - OPTIC NEUROPATHY [None]
